FAERS Safety Report 15315604 (Version 1)
Quarter: 2018Q3

REPORT INFORMATION
  Report Type: Spontaneous
  Country: US (occurrence: US)
  Receive Date: 20180824
  Receipt Date: 20180824
  Transmission Date: 20181010
  Serious: No
  Sender: FDA-Public Use
  Company Number: US-MYLANLABS-2018M1061875

PATIENT
  Sex: Female
  Weight: 75 kg

DRUGS (6)
  1. CLONAZEPAM TABLETS, USP [Suspect]
     Active Substance: CLONAZEPAM
     Dosage: 1 AND QUARTER OF THE TABLET
  2. CLONAZEPAM TABLETS, USP [Suspect]
     Active Substance: CLONAZEPAM
     Dosage: A WHOLE TABLET AND ONE HALF OF THE TABLET
     Route: 048
     Dates: start: 20180811
  3. CLONAZEPAM TABLETS, USP [Suspect]
     Active Substance: CLONAZEPAM
     Dosage: ONE AND ONE HALF
     Route: 048
  4. CLONAZEPAM TABLETS, USP [Suspect]
     Active Substance: CLONAZEPAM
     Indication: RESTLESS LEGS SYNDROME
     Dosage: UNK
     Route: 048
  5. CLONAZEPAM. [Suspect]
     Active Substance: CLONAZEPAM
     Indication: PRODUCT USED FOR UNKNOWN INDICATION
     Dosage: HALF TABLET
     Dates: start: 20180811
  6. CLONAZEPAM. [Suspect]
     Active Substance: CLONAZEPAM
     Dosage: ONE WHOLE TABLET AND ONE HALF TABLET
     Dates: start: 20180812

REACTIONS (2)
  - Drug ineffective for unapproved indication [Not Recovered/Not Resolved]
  - Diarrhoea [Unknown]
